FAERS Safety Report 8911176 (Version 1)
Quarter: 2012Q4

REPORT INFORMATION
  Report Type: 
  Country: US (occurrence: US)
  Receive Date: 20121116
  Receipt Date: 20121116
  Transmission Date: 20130627
  Serious: No
  Sender: FDA-Public Use
  Company Number: US-GLAXOSMITHKLINE-A0988810A

PATIENT
  Age: 76 Year
  Sex: Male

DRUGS (2)
  1. VOTRIENT [Suspect]
     Indication: PRODUCT USED FOR UNKNOWN INDICATION
     Dosage: 400MG Twice per day
     Route: 048
     Dates: start: 20120109, end: 20120530
  2. NO CONCURRENT MEDICATION [Concomitant]

REACTIONS (1)
  - Drug ineffective [Unknown]
